FAERS Safety Report 9766378 (Version 1)
Quarter: 2013Q4

REPORT INFORMATION
  Report Type: Spontaneous
  Country: US (occurrence: None)
  Receive Date: 20131213
  Receipt Date: 20131213
  Transmission Date: 20140711
  Serious: Yes (Other)
  Sender: FDA-Public Use
  Company Number: 2013SA029778

PATIENT
  Age: 93 Year
  Sex: Female
  Weight: 70.3 kg

DRUGS (5)
  1. ICY HOT ARM, NECK + LEG PATCH [Suspect]
     Indication: PRODUCT USED FOR UNKNOWN INDICATION
     Dosage: ; UNKNOWN ; UNKNOWN
  2. COUMADIN [Concomitant]
  3. VITAMINS [Concomitant]
  4. WATER PILLS [Concomitant]
  5. POTASSIUM [Concomitant]

REACTIONS (5)
  - Thermal burn [None]
  - Burns third degree [None]
  - Erythema [None]
  - Blister [None]
  - Pain [None]
